FAERS Safety Report 23251481 (Version 2)
Quarter: 2023Q4

REPORT INFORMATION
  Report Type: Spontaneous
  Country: AU (occurrence: AU)
  Receive Date: 20231201
  Receipt Date: 20231211
  Transmission Date: 20240109
  Serious: Yes (Other)
  Sender: FDA-Public Use
  Company Number: AU-ORGANON-O2311AUS003179

PATIENT
  Sex: Female

DRUGS (2)
  1. MAXALT-MLT [Suspect]
     Active Substance: RIZATRIPTAN BENZOATE
     Indication: Migraine
     Dosage: UNK
  2. ZOSTRIX HP [Concomitant]
     Active Substance: CAPSAICIN
     Indication: Neuralgia
     Dosage: 3 TUBES PER WEEK

REACTIONS (4)
  - Leukaemia [Unknown]
  - Feeling abnormal [Unknown]
  - Ear neoplasm [Unknown]
  - Therapeutic response unexpected [Unknown]
